FAERS Safety Report 7917633-8 (Version None)
Quarter: 2011Q4

REPORT INFORMATION
  Report Type: 
  Country: None (occurrence: None)
  Receive Date: 20111116
  Receipt Date: 20111103
  Transmission Date: 20120403
  Serious: Yes (Other)
  Sender: FDA-Public Use
  Company Number: CA-ELI_LILLY_AND_COMPANY-CA201111000789

PATIENT
  Sex: Female

DRUGS (2)
  1. PERPHENAZINE [Concomitant]
  2. ZYPREXA [Suspect]
     Indication: BIPOLAR DISORDER
     Dosage: 1 DF, UNK
     Dates: start: 20030701, end: 20090501

REACTIONS (5)
  - HYPERGLYCAEMIA [None]
  - ADVERSE EVENT [None]
  - BLOOD CHOLESTEROL INCREASED [None]
  - GLAUCOMA [None]
  - WEIGHT INCREASED [None]
